FAERS Safety Report 6067545-2 (Version None)
Quarter: 2009Q1

REPORT INFORMATION
  Report Type: 
  Country: None (occurrence: None)
  Receive Date: 20090205
  Receipt Date: 20090130
  Transmission Date: 20090719
  Serious: No
  Sender: FDA-Public Use
  Company Number: US-B.I. PHARMACEUTICALS,INC./RIDGEFIELD-2009-BP-01317BP

PATIENT
  Sex: Male

DRUGS (1)
  1. ZANTAC 150 [Suspect]

REACTIONS (1)
  - URINE AMPHETAMINE POSITIVE [None]
